FAERS Safety Report 5067564-9 (Version None)
Quarter: 2006Q3

REPORT INFORMATION
  Report Type: 
  Country: None (occurrence: None)
  Receive Date: 20060717
  Receipt Date: 20050621
  Transmission Date: 20061208
  Serious: Yes (Other)
  Sender: FDA-Public Use
  Company Number: K200500869

PATIENT
  Age: 16 Month
  Sex: Female
  Weight: 10 kg

DRUGS (1)
  1. LEVOXYL [Suspect]
     Dosage: 50 MCG, QD, ORAL
     Route: 048
     Dates: start: 20050101, end: 20050620

REACTIONS (1)
  - CONVULSION [None]
